FAERS Safety Report 9364677 (Version 2)
Quarter: 2014Q1

REPORT INFORMATION
  Report Type: Spontaneous
  Country: US (occurrence: US)
  Receive Date: 20130624
  Receipt Date: 20140115
  Transmission Date: 20141002
  Serious: Yes (Hospitalization, Other)
  Sender: FDA-Public Use
  Company Number: US-009507513-1306USA010268

PATIENT
  Sex: Female
  Weight: 90.7 kg

DRUGS (3)
  1. NUVARING [Suspect]
     Indication: CONTRACEPTION
     Dosage: UNK
     Route: 067
     Dates: start: 20061024, end: 20080130
  2. NUVARING [Suspect]
     Indication: CONTRACEPTION
     Dosage: UNK
     Route: 067
     Dates: end: 20110809
  3. SUMATRIPTAN [Concomitant]
     Indication: MIGRAINE
     Dosage: PRN
     Dates: start: 2001

REACTIONS (14)
  - Pneumonia [Unknown]
  - Pulmonary embolism [Recovering/Resolving]
  - Inappropriate schedule of drug administration [Unknown]
  - Infection [Unknown]
  - Infection [Unknown]
  - Infection [Unknown]
  - Infection [Unknown]
  - Skin disorder [Unknown]
  - Muscle disorder [Unknown]
  - Anxiety [Unknown]
  - Antiphospholipid antibodies positive [Unknown]
  - Haematuria [Unknown]
  - Blood thyroid stimulating hormone increased [Unknown]
  - Coagulation factor VIII level increased [Unknown]
